FAERS Safety Report 10144190 (Version 1)
Quarter: 2014Q2

REPORT INFORMATION
  Report Type: Spontaneous
  Country: CH (occurrence: CH)
  Receive Date: 20140430
  Receipt Date: 20140430
  Transmission Date: 20141212
  Serious: Yes (Hospitalization)
  Sender: FDA-Public Use
  Company Number: PHHY2014CH050313

PATIENT
  Age: 50 Year
  Sex: Male

DRUGS (5)
  1. CLOPIN ECO [Suspect]
     Indication: SCHIZOPHRENIA, CATATONIC TYPE
     Dosage: 100 MG, BID
     Route: 048
  2. FLOXYFRAL [Interacting]
     Dosage: 100 MG, QD
     Route: 048
  3. ABILIFY [Interacting]
     Dosage: 10 MG, BID
     Route: 048
  4. INDERAL [Interacting]
     Dosage: 40 MG, UNK
  5. BENOCTEN [Suspect]
     Dosage: 50 MG, QD
     Route: 048

REACTIONS (4)
  - Rebound tachycardia [Recovering/Resolving]
  - Pulmonary embolism [Recovering/Resolving]
  - Tachycardia [Recovering/Resolving]
  - Drug interaction [Recovering/Resolving]
